FAERS Safety Report 14610182 (Version 1)
Quarter: 2018Q1

REPORT INFORMATION
  Report Type: Report from Study
  Country: CA (occurrence: CA)
  Receive Date: 20180307
  Receipt Date: 20180307
  Transmission Date: 20180509
  Serious: Yes (Other)
  Sender: FDA-Public Use
  Company Number: CA-TAKEDA-2018MPI002221

PATIENT
  Age: 52 Year
  Sex: Female

DRUGS (10)
  1. DEXAMETHASONE. [Suspect]
     Active Substance: DEXAMETHASONE
     Indication: PLASMA CELL MYELOMA
     Dosage: 40 MG, 1/WEEK
     Route: 065
     Dates: start: 20171013
  2. POMALYST [Concomitant]
     Active Substance: POMALIDOMIDE
     Dosage: 2 MG, UNK
     Dates: start: 20171013
  3. SEPTRA DS [Concomitant]
     Active Substance: SULFAMETHOXAZOLE\TRIMETHOPRIM
     Dosage: UNK UNK, BID
  4. IXAZOMIB [Suspect]
     Active Substance: IXAZOMIB
     Indication: PLASMA CELL MYELOMA
     Dosage: 2.3 MG, UNK
     Route: 048
     Dates: start: 20171110
  5. ACETYLSALICYLIC ACID [Suspect]
     Active Substance: ASPIRIN
     Indication: PRODUCT USED FOR UNKNOWN INDICATION
     Dosage: 81 MG, QD
     Dates: start: 20171013, end: 20171031
  6. EPREX [Concomitant]
     Active Substance: ERYTHROPOIETIN
     Dosage: UNK UNK, 1/WEEK
     Dates: start: 20171003
  7. ACETYLSALICYLIC ACID [Suspect]
     Active Substance: ASPIRIN
     Dosage: 81 MG, QD
     Dates: start: 20171106
  8. POMALYST [Concomitant]
     Active Substance: POMALIDOMIDE
     Dosage: UNK
     Dates: start: 20180111
  9. POMALYST [Concomitant]
     Active Substance: POMALIDOMIDE
     Dosage: 1 MG, UNK
     Dates: start: 20171110
  10. PREDNISONE. [Concomitant]
     Active Substance: PREDNISONE
     Dosage: 50 MG, UNK
     Dates: start: 20180104

REACTIONS (4)
  - Plasma cell myeloma [Unknown]
  - Hepatic mass [Unknown]
  - Off label use [Unknown]
  - Epistaxis [Recovered/Resolved]
